FAERS Safety Report 6794930-3 (Version None)
Quarter: 2010Q2

REPORT INFORMATION
  Report Type: 
  Country: None (occurrence: None)
  Receive Date: 20100625
  Receipt Date: 20100617
  Transmission Date: 20101027
  Serious: Yes (Other)
  Sender: FDA-Public Use
  Company Number: ZA-SANOFI-AVENTIS-2010SA035173

PATIENT
  Sex: Female

DRUGS (3)
  1. TAXOTERE [Suspect]
     Indication: CHEMOTHERAPY
  2. ADRIAMYCIN PFS [Concomitant]
     Indication: CHEMOTHERAPY
  3. CYCLOPHOSPHAMIDE [Concomitant]
     Indication: CHEMOTHERAPY

REACTIONS (1)
  - PULMONARY HYPERTENSION [None]
